FAERS Safety Report 9159650 (Version 1)
Quarter: 2013Q1

REPORT INFORMATION
  Report Type: Spontaneous
  Country: US (occurrence: None)
  Receive Date: 20130312
  Receipt Date: 20130312
  Transmission Date: 20140127
  Serious: Yes (Death, Hospitalization)
  Sender: FDA-Public Use
  Company Number: None

PATIENT
  Age: 50 Year
  Sex: Female

DRUGS (10)
  1. WARFARIN [Suspect]
     Route: 048
  2. PROAIR HFA [Concomitant]
  3. BUMETANIDE [Concomitant]
  4. CARVEDILOL [Concomitant]
  5. PLAQUENIL [Concomitant]
  6. LEVOTHYROXINE [Concomitant]
  7. OXYCODON [Concomitant]
  8. PANTOPRAZOLE [Concomitant]
  9. PREDNISONE [Concomitant]
  10. TRAMADOL [Concomitant]

REACTIONS (12)
  - Asthenia [None]
  - Rectal haemorrhage [None]
  - Hypotension [None]
  - Septic shock [None]
  - Abscess limb [None]
  - International normalised ratio increased [None]
  - Cardiomyopathy [None]
  - Hyperbilirubinaemia [None]
  - Ejection fraction decreased [None]
  - Blood urea increased [None]
  - Blood creatinine increased [None]
  - Pseudomonas test positive [None]
